FAERS Safety Report 8859438 (Version 1)
Quarter: 2012Q4

REPORT INFORMATION
  Report Type: 
  Country: CA (occurrence: CA)
  Receive Date: 20121024
  Receipt Date: 20121024
  Transmission Date: 20130627
  Serious: Yes (Other)
  Sender: FDA-Public Use
  Company Number: CA-ASTRAZENECA-2012SE79311

PATIENT
  Age: 61 Year

DRUGS (1)
  1. ANASTROZOLE [Suspect]
     Route: 048
     Dates: start: 2010

REACTIONS (2)
  - Metastases to bone [Unknown]
  - Metastases to lung [Unknown]
